FAERS Safety Report 13625582 (Version 3)
Quarter: 2017Q4

REPORT INFORMATION
  Report Type: Spontaneous
  Country: US (occurrence: US)
  Receive Date: 20170608
  Receipt Date: 20171220
  Transmission Date: 20180320
  Serious: No
  Sender: FDA-Public Use
  Company Number: US-ASTRAZENECA-2017SE59884

PATIENT
  Age: 611 Month
  Sex: Male
  Weight: 68.9 kg

DRUGS (2)
  1. AVONEX [Concomitant]
     Active Substance: INTERFERON BETA-1A
     Indication: MULTIPLE SCLEROSIS
     Route: 030
     Dates: start: 2003
  2. BYDUREON [Suspect]
     Active Substance: EXENATIDE
     Indication: TYPE 2 DIABETES MELLITUS
     Route: 058
     Dates: start: 2016

REACTIONS (7)
  - Product storage error [Unknown]
  - Blood glucose increased [Unknown]
  - Underdose [Unknown]
  - Product quality issue [Unknown]
  - Injection site haemorrhage [Unknown]
  - Circumstance or information capable of leading to medication error [Unknown]
  - Intentional device misuse [Unknown]

NARRATIVE: CASE EVENT DATE: 201706
